FAERS Safety Report 9564658 (Version 2)
Quarter: 2013Q4

REPORT INFORMATION
  Report Type: Spontaneous
  Country: US (occurrence: US)
  Receive Date: 20130930
  Receipt Date: 20131028
  Transmission Date: 20140711
  Serious: No
  Sender: FDA-Public Use
  Company Number: US-PFIZER INC-2013278125

PATIENT
  Age: 52 Year
  Sex: Female
  Weight: 155 kg

DRUGS (15)
  1. XELJANZ [Suspect]
     Indication: RHEUMATOID ARTHRITIS
     Dosage: 5 MG, 2X/DAY
     Route: 048
     Dates: start: 20130614
  2. XELJANZ [Suspect]
     Dosage: 5 MG, 2X/DAY
     Route: 048
     Dates: start: 20130619
  3. ORENCIA [Concomitant]
     Dosage: 1000 MG, REPEAT EVERY 4 WEEKS THEREAFTER
     Route: 042
     Dates: start: 20110809, end: 20120808
  4. WELLBATRIN [Concomitant]
     Dosage: 150 MG, 2X/DAY
     Route: 048
  5. CYMBALTA [Concomitant]
     Dosage: 20 MG, DAILY
     Dates: start: 20121211
  6. FOLIC ACID [Concomitant]
     Dosage: 1 MG, UNK
     Dates: start: 20130710
  7. RHEUMATREX [Concomitant]
     Dosage: 17.5 MG, WEEKLY
     Route: 048
  8. GARLIC/MULTIVITAMIN/UBIQUINONE/VITAMIN E [Concomitant]
     Dosage: 1 TABLET EVERY DAY
     Route: 048
  9. DELTASONE [Concomitant]
     Dosage: 7.5 MG, DAILY
     Route: 048
     Dates: start: 20120925, end: 20130925
  10. RITUXIMAB [Concomitant]
     Dosage: 1000 MG FOR 2 DOSE(S) 2WEEKS APART
     Dates: start: 20130403
  11. SOLU-MEDROL [Concomitant]
     Indication: PREMEDICATION
     Dosage: 100 MG,
  12. ONDANSETRON [Concomitant]
     Dosage: 8 MG, AS NEEDED
  13. BENADRYL [Concomitant]
     Dosage: 50 MG, AS NEEDED
  14. SALSALATE [Concomitant]
     Indication: RHEUMATOID ARTHRITIS
     Dosage: 750 MG TABLET) 1.5 TABS BY MOUTH EVERY AM AND TAKE 2 TABS AT BEDTIME
     Dates: start: 20130710
  15. AMBIEN [Suspect]
     Dosage: 10 MG, AS NEEDED EVERY DAY AT BEDTIME
     Route: 048

REACTIONS (1)
  - Acne [Unknown]
